FAERS Safety Report 9494002 (Version 2)
Quarter: 2013Q4

REPORT INFORMATION
  Report Type: Spontaneous
  Country: DE (occurrence: DE)
  Receive Date: 20130903
  Receipt Date: 20131021
  Transmission Date: 20140711
  Serious: Yes (Hospitalization, Other)
  Sender: FDA-Public Use
  Company Number: DE-AMGEN-DEUSP2013060738

PATIENT
  Age: 77 Year
  Sex: Male

DRUGS (5)
  1. XGEVA [Suspect]
     Indication: METASTASES TO BONE
     Dosage: 120 MG, QMO
     Route: 058
     Dates: start: 20111129
  2. CHEMOTHERAPEUTICS [Concomitant]
  3. ZYTIGA [Concomitant]
     Indication: HORMONE-REFRACTORY PROSTATE CANCER
     Dosage: 250 MG, QID
     Route: 048
     Dates: start: 20120129
  4. PREDNISOLON                        /00016201/ [Concomitant]
     Dosage: 5 MG, BID
     Route: 048
     Dates: start: 20120124
  5. SIXANTONE [Concomitant]
     Indication: PROSTATE CANCER
     Dosage: 30 MG, Q6MO
     Route: 058
     Dates: start: 20121130

REACTIONS (1)
  - Osteonecrosis of jaw [Not Recovered/Not Resolved]
